FAERS Safety Report 8034117-X (Version None)
Quarter: 2012Q1

REPORT INFORMATION
  Report Type: 
  Country: None (occurrence: None)
  Receive Date: 20120110
  Receipt Date: 20111229
  Transmission Date: 20120608
  Serious: Yes (Hospitalization)
  Sender: FDA-Public Use
  Company Number: US-ACTELION-A-NJ2011-58986

PATIENT

DRUGS (3)
  1. CALCIUM CHANNEL BLOCKERS [Concomitant]
  2. TRACLEER [Suspect]
     Indication: PULMONARY ARTERIAL HYPERTENSION
     Dosage: UNK
     Route: 048
     Dates: start: 20020719
  3. COUMADIN [Concomitant]

REACTIONS (5)
  - ENZYME ABNORMALITY [None]
  - CONTUSION [None]
  - BLOOD PRESSURE INCREASED [None]
  - FLUID OVERLOAD [None]
  - FATIGUE [None]
